FAERS Safety Report 14677114 (Version 1)
Quarter: 2018Q1

REPORT INFORMATION
  Report Type: Spontaneous
  Country: US (occurrence: US)
  Receive Date: 20180323
  Receipt Date: 20180323
  Transmission Date: 20180509
  Serious: Yes (Hospitalization)
  Sender: FDA-Public Use
  Company Number: None

PATIENT
  Age: 68 Year
  Sex: Male
  Weight: 83.4 kg

DRUGS (4)
  1. METHOTREXATE. [Suspect]
     Active Substance: METHOTREXATE
     Dates: end: 20180312
  2. MERCAPTOPURINE. [Suspect]
     Active Substance: MERCAPTOPURINE
     Dates: end: 20180315
  3. PREDNISONE. [Suspect]
     Active Substance: PREDNISONE
     Dates: end: 20180303
  4. VINCRISTINE SULFATE. [Suspect]
     Active Substance: VINCRISTINE SULFATE
     Dates: end: 20180227

REACTIONS (7)
  - Yellow skin [None]
  - Cholelithiasis [None]
  - Blood bilirubin increased [None]
  - Alanine aminotransferase increased [None]
  - Malaise [None]
  - Aspartate aminotransferase increased [None]
  - Nausea [None]

NARRATIVE: CASE EVENT DATE: 20180315
